FAERS Safety Report 7796574-3 (Version None)
Quarter: 2011Q4

REPORT INFORMATION
  Report Type: 
  Country: None (occurrence: None)
  Receive Date: 20111005
  Receipt Date: 20110930
  Transmission Date: 20120403
  Serious: Yes (Other)
  Sender: FDA-Public Use
  Company Number: US-PFIZER INC-2011023410

PATIENT
  Sex: Female
  Weight: 77.098 kg

DRUGS (1)
  1. ADVIL CONGESTION RELIEF [Suspect]
     Indication: RESPIRATORY TRACT CONGESTION
     Dosage: UNK
     Route: 048
     Dates: start: 20110126, end: 20110126

REACTIONS (4)
  - HYPERSENSITIVITY [None]
  - DYSPNOEA [None]
  - THROAT TIGHTNESS [None]
  - DRUG INEFFECTIVE [None]
